FAERS Safety Report 5342649-8 (Version None)
Quarter: 2007Q2

REPORT INFORMATION
  Report Type: 
  Country: None (occurrence: None)
  Receive Date: 20070601
  Receipt Date: 20070525
  Transmission Date: 20071010
  Serious: Yes (Hospitalization, Other)
  Sender: FDA-Public Use
  Company Number: DE-PFIZER INC-2007038962

PATIENT
  Sex: Female

DRUGS (8)
  1. LYRICA [Suspect]
     Indication: POLYNEUROPATHY
     Route: 048
     Dates: start: 20070101, end: 20070502
  2. TRANSTEC TTS [Concomitant]
     Route: 062
     Dates: start: 20020201, end: 20070501
  3. METOPROLOL SUCCINATE [Concomitant]
  4. ALL OTHER THERAPEUTIC PRODUCTS [Concomitant]
  5. TORSEMIDE [Concomitant]
  6. MADOPAR [Concomitant]
  7. MARCUMAR [Concomitant]
  8. ALL OTHER THERAPEUTIC PRODUCTS [Concomitant]

REACTIONS (2)
  - DRUG WITHDRAWAL SYNDROME [None]
  - PSYCHOTIC DISORDER [None]
